FAERS Safety Report 7556694-5 (Version None)
Quarter: 2011Q2

REPORT INFORMATION
  Report Type: 
  Country: None (occurrence: None)
  Receive Date: 20110620
  Receipt Date: 20110608
  Transmission Date: 20111010
  Serious: Yes (Hospitalization)
  Sender: FDA-Public Use
  Company Number: FR-PFIZER INC-2011133792

PATIENT
  Age: 82 Year
  Sex: Female

DRUGS (12)
  1. HUMALOG [Concomitant]
     Indication: TYPE 2 DIABETES MELLITUS
     Route: 058
  2. REPAGLINIDE [Concomitant]
     Indication: TYPE 2 DIABETES MELLITUS
     Dosage: 1 DF, DAILY
     Route: 048
  3. MOTILIUM [Concomitant]
     Dosage: 1 DF, UNK
     Route: 048
  4. CEFUROXIME SODIUM [Suspect]
     Indication: BRONCHITIS
     Dosage: UNK
     Route: 048
     Dates: start: 20110204, end: 20110205
  5. CLARITHROMYCIN [Suspect]
     Indication: BRONCHITIS
     Dosage: UNK
     Route: 048
     Dates: start: 20110131, end: 20110204
  6. UMULINE [Concomitant]
     Indication: TYPE 2 DIABETES MELLITUS
     Dosage: 24 IU, UNK
     Route: 058
  7. ATARAX [Suspect]
     Indication: ANXIETY
     Dosage: 1 UNIT, UNK
     Route: 048
     Dates: start: 20110223, end: 20110224
  8. RAMIPRIL [Concomitant]
     Indication: HYPERTENSION
     Dosage: 5 MG, UNK
     Route: 048
     Dates: end: 20110307
  9. CLARITIN [Suspect]
     Indication: BRONCHITIS
     Dosage: UNK
     Route: 048
     Dates: start: 20110223, end: 20110224
  10. CELLULASE/DIASTASE/HEMICELLULASE/LIPASE/PANCREATIN/PROTEASE/TRYPSIN [Suspect]
     Dosage: UNK UNK
  11. MOXIFLOXACIN HCL [Suspect]
     Indication: BRONCHITIS
     Dosage: UNK
     Route: 048
     Dates: start: 20110124, end: 20110130
  12. FURADANTINE [Concomitant]
     Dosage: 50 MG, 3X/DAY
     Route: 048
     Dates: start: 20110110, end: 20110201

REACTIONS (3)
  - LEUKOCYTOCLASTIC VASCULITIS [None]
  - CUTANEOUS VASCULITIS [None]
  - URTICARIA [None]
